FAERS Safety Report 8813966 (Version 2)
Quarter: 2012Q4

REPORT INFORMATION
  Report Type: 
  Country: PT (occurrence: PT)
  Receive Date: 20120928
  Receipt Date: 20121031
  Transmission Date: 20130627
  Serious: Yes (Other)
  Sender: FDA-Public Use
  Company Number: PT-009507513-1209PRT009838

PATIENT
  Age: 46 Year
  Sex: Female

DRUGS (16)
  1. EZETROL [Suspect]
     Indication: DYSLIPIDAEMIA
     Dosage: UNK
     Dates: start: 20120730, end: 20120827
  2. CRESTOR [Suspect]
     Dosage: UNK
     Dates: start: 2012, end: 2012
  3. OMEPRAZOLE [Concomitant]
  4. ALPRAZOLAM [Concomitant]
  5. CARVEDILOL [Concomitant]
  6. FUROSEMIDE [Concomitant]
  7. METOLAZONE [Concomitant]
  8. RAMIPRIL [Concomitant]
  9. SERTRALINE HYDROCHLORIDE [Concomitant]
  10. TRAZODONE HYDROCHLORIDE [Concomitant]
  11. SEVELAMER [Concomitant]
  12. FOLIC ACID [Concomitant]
  13. VITAMIN B COMPLEX [Concomitant]
  14. CALCITRIOL [Concomitant]
  15. WARFARIN [Concomitant]
  16. DARBEPOETIN ALFA [Concomitant]
     Dosage: AS NEEDED

REACTIONS (2)
  - Blood creatine phosphokinase increased [Recovering/Resolving]
  - Myoglobin blood increased [Recovering/Resolving]
